FAERS Safety Report 5055424-9 (Version None)
Quarter: 2006Q3

REPORT INFORMATION
  Report Type: 
  Country: None (occurrence: None)
  Receive Date: 20060717
  Receipt Date: 20060717
  Transmission Date: 20061208
  Serious: Yes (Hospitalization)
  Sender: FDA-Public Use
  Company Number: None

PATIENT
  Sex: Female

DRUGS (7)
  1. OMNIPAQUE 300 [Suspect]
     Indication: SCAN WITH CONTRAST
     Dosage: 125 ML IV OTO
     Route: 042
     Dates: start: 20060325
  2. TOPROL-XL [Concomitant]
  3. ZETIA [Concomitant]
  4. ALBUTEROL SPIROS [Concomitant]
  5. ASPIRIN [Concomitant]
  6. HYDROCHLOROTHIAZIDE [Concomitant]
  7. SYNTHROID [Concomitant]

REACTIONS (7)
  - CHEST DISCOMFORT [None]
  - CONTRAST MEDIA REACTION [None]
  - DIZZINESS [None]
  - DYSPNOEA [None]
  - ERYTHEMA [None]
  - PRURITUS [None]
  - URTICARIA [None]
